FAERS Safety Report 6634908-3 (Version None)
Quarter: 2010Q1

REPORT INFORMATION
  Report Type: 
  Country: None (occurrence: None)
  Receive Date: 20100315
  Receipt Date: 20100309
  Transmission Date: 20100710
  Serious: Yes (Death, Hospitalization, Disabling, Other)
  Sender: FDA-Public Use
  Company Number: JP-JNJFOC-20091207203

PATIENT
  Sex: Male
  Weight: 44 kg

DRUGS (8)
  1. PREZISTA [Suspect]
     Indication: HIV INFECTION
     Route: 048
  2. EPIVIR [Concomitant]
     Indication: HIV INFECTION
     Route: 048
  3. ZERIT [Concomitant]
     Indication: HIV INFECTION
     Route: 048
  4. NORVIR [Concomitant]
     Indication: HIV INFECTION
     Route: 048
  5. VICCLOX [Concomitant]
     Indication: DRUG USE FOR UNKNOWN INDICATION
     Route: 048
  6. ISENTRESS [Concomitant]
     Indication: HIV INFECTION
     Route: 048
  7. VIREAD [Concomitant]
     Indication: HIV INFECTION
     Route: 048
  8. NOVACT-M [Concomitant]
     Indication: FACTOR IX DEFICIENCY
     Dosage: 0 - 4 PER DAY
     Route: 050

REACTIONS (4)
  - BRAIN STEM HAEMORRHAGE [None]
  - OESOPHAGEAL OBSTRUCTION [None]
  - OESOPHAGEAL ULCER [None]
  - PNEUMONIA [None]
